FAERS Safety Report 12716188 (Version 3)
Quarter: 2016Q3

REPORT INFORMATION
  Report Type: Report from Study
  Country: CA (occurrence: CA)
  Receive Date: 20160906
  Receipt Date: 20160915
  Transmission Date: 20161109
  Serious: Yes (Hospitalization, Other)
  Sender: FDA-Public Use
  Company Number: PHHY2014CA084161

PATIENT
  Age: 46 Year
  Sex: Male

DRUGS (3)
  1. SANDOSTATIN LAR DEPOT [Suspect]
     Active Substance: OCTREOTIDE ACETATE
     Indication: NEUROENDOCRINE TUMOUR
     Dosage: 30 MG, QMO/EVERY 4 WEEKS
     Route: 030
     Dates: start: 20140606, end: 20160802
  2. AFINITOR [Suspect]
     Active Substance: EVEROLIMUS
     Indication: NEUROENDOCRINE TUMOUR
     Dosage: 10 MG, QD
     Route: 048
     Dates: start: 20140922
  3. SANDOSTATIN [Suspect]
     Active Substance: OCTREOTIDE ACETATE
     Indication: NEUROENDOCRINE CARCINOMA METASTATIC
     Dosage: 100 UG, ONCE/SINGLE
     Route: 058
     Dates: start: 20140527, end: 20140527

REACTIONS (14)
  - Blood pressure systolic increased [Unknown]
  - Burning sensation [Recovered/Resolved]
  - Fatigue [Unknown]
  - Back pain [Unknown]
  - Blood glucose increased [Recovering/Resolving]
  - Impaired insulin secretion [Unknown]
  - Asthenia [Unknown]
  - Nasopharyngitis [Unknown]
  - Tooth fracture [Unknown]
  - Injection site discomfort [Unknown]
  - Vomiting [Unknown]
  - Injection site pain [Unknown]
  - Nausea [Unknown]
  - Blood glucose decreased [Unknown]

NARRATIVE: CASE EVENT DATE: 20140606
